FAERS Safety Report 11318348 (Version 1)
Quarter: 2015Q3

REPORT INFORMATION
  Report Type: Report from Study
  Country: HU (occurrence: HU)
  Receive Date: 20150728
  Receipt Date: 20150728
  Transmission Date: 20151125
  Serious: Yes (Hospitalization, Other)
  Sender: FDA-Public Use
  Company Number: HU-GILEAD-2014-0121801

PATIENT
  Age: 69 Year
  Sex: Male
  Weight: 113.1 kg

DRUGS (38)
  1. RITUXIMAB [Suspect]
     Active Substance: RITUXIMAB
     Indication: CHRONIC LYMPHOCYTIC LEUKAEMIA
     Dosage: 874 MG, CYCLICAL
     Route: 042
     Dates: start: 20140904, end: 20140904
  2. RITUXIMAB [Suspect]
     Active Substance: RITUXIMAB
     Dosage: 1165 MG, CYCLICAL
     Route: 042
     Dates: end: 20141126
  3. BENDAMUSTINE [Suspect]
     Active Substance: BENDAMUSTINE
     Dosage: 93 MG, CYCLICAL
     Route: 042
     Dates: end: 20141222
  4. EPOETIN ALFA [Concomitant]
     Active Substance: ERYTHROPOIETIN
     Route: 058
     Dates: start: 20141016, end: 20141106
  5. LIPANOR [Concomitant]
     Active Substance: CIPROFIBRATE
     Indication: MYOCARDIAL INFARCTION
     Route: 048
     Dates: start: 2009
  6. PLACEBO [Suspect]
     Active Substance: UNSPECIFIED INGREDIENT
     Indication: CHRONIC LYMPHOCYTIC LEUKAEMIA
     Dosage: 150 MG, BID
     Route: 048
     Dates: start: 20140904
  7. BENDAMUSTINE [Suspect]
     Active Substance: BENDAMUSTINE
     Indication: CHRONIC LYMPHOCYTIC LEUKAEMIA
     Dosage: 209 MG, CYCLICAL
     Route: 042
     Dates: start: 20140904, end: 20140904
  8. NITROMINT [Concomitant]
     Indication: MYOCARDIAL INFARCTION
     Route: 048
     Dates: start: 2009
  9. EROLIN [Concomitant]
     Dosage: UNK
     Route: 048
     Dates: start: 20140904, end: 20150205
  10. MEXALEN [Concomitant]
     Active Substance: LUBIPROSTONE
     Route: 048
     Dates: start: 20140904, end: 20150205
  11. RITUXIMAB [Suspect]
     Active Substance: RITUXIMAB
     Dosage: 1165 MG, CYCLICAL
     Route: 042
     Dates: end: 20150205
  12. BENDAMUSTINE [Suspect]
     Active Substance: BENDAMUSTINE
     Dosage: 93 MG, CYCLICAL
     Route: 042
     Dates: end: 20150206
  13. FUROSEMID                          /00032601/ [Concomitant]
     Active Substance: FUROSEMIDE
     Dosage: UNK
     Route: 048
     Dates: start: 20141015, end: 20141030
  14. RITUXIMAB [Suspect]
     Active Substance: RITUXIMAB
     Dosage: 1165 MG, CYCLICAL
     Route: 042
     Dates: start: 20141030, end: 20141030
  15. BENDAMUSTINE [Suspect]
     Active Substance: BENDAMUSTINE
     Dosage: 139 MG, CYCLICAL
     Route: 042
     Dates: start: 20141002, end: 20141002
  16. BENDAMUSTINE [Suspect]
     Active Substance: BENDAMUSTINE
     Dosage: 139 MG, CYCLICAL
     Route: 042
     Dates: start: 20141003, end: 20141003
  17. AMLIPIN [Concomitant]
     Indication: HYPERTENSION
     Dosage: UNK
     Route: 048
     Dates: start: 2009, end: 20141030
  18. MILURIT [Concomitant]
     Active Substance: ALLOPURINOL
     Indication: GOUT
     Route: 048
     Dates: start: 2008
  19. EROLIN [Concomitant]
     Dosage: UNK
     Route: 048
     Dates: start: 20140904, end: 20150205
  20. TELVIRAN [Concomitant]
     Route: 048
     Dates: start: 20140904
  21. RITUXIMAB [Suspect]
     Active Substance: RITUXIMAB
     Dosage: 1165 MG, CYCLICAL
     Route: 042
     Dates: start: 20141002, end: 20141002
  22. BENDAMUSTINE [Suspect]
     Active Substance: BENDAMUSTINE
     Dosage: 209 MG, CYCLICAL
     Route: 042
     Dates: start: 20140905, end: 20140905
  23. BENDAMUSTINE [Suspect]
     Active Substance: BENDAMUSTINE
     Dosage: 139 MG, CYCLICAL
     Route: 042
     Dates: start: 20141030, end: 20141030
  24. SUMETROLIM [Concomitant]
     Route: 048
     Dates: start: 20140904
  25. FUROSEMID                          /00032601/ [Concomitant]
     Active Substance: FUROSEMIDE
     Indication: CARDIAC FAILURE
     Dosage: UNK
     Route: 042
     Dates: start: 20141031, end: 20141104
  26. RITUXIMAB [Suspect]
     Active Substance: RITUXIMAB
     Dosage: 1165 MG, CYCLICAL
     Route: 042
     Dates: end: 20141222
  27. BENDAMUSTINE [Suspect]
     Active Substance: BENDAMUSTINE
     Dosage: 139 MG, CYCLICAL
     Route: 042
     Dates: end: 20141126
  28. BENDAMUSTINE [Suspect]
     Active Substance: BENDAMUSTINE
     Dosage: 93 MG, CYCLICAL
     Route: 042
     Dates: end: 20141223
  29. EPOETIN ALFA [Concomitant]
     Active Substance: ERYTHROPOIETIN
     Indication: ANAEMIA
     Dosage: UNK
     Route: 058
     Dates: start: 20141016, end: 20141106
  30. MEXALEN [Concomitant]
     Active Substance: LUBIPROSTONE
     Dosage: UNK
     Route: 048
     Dates: start: 20140904, end: 20150205
  31. SOLU-MEDROL [Concomitant]
     Active Substance: METHYLPREDNISOLONE SODIUM SUCCINATE
     Dosage: UNK
     Route: 042
     Dates: start: 20140904, end: 20150205
  32. KALDYUM [Concomitant]
     Active Substance: POTASSIUM CHLORIDE
     Indication: CARDIAC FAILURE
     Route: 048
     Dates: start: 20141015
  33. BLINDED IDELALISIB [Suspect]
     Active Substance: IDELALISIB
     Indication: CHRONIC LYMPHOCYTIC LEUKAEMIA
     Dosage: 150 MG, BID
     Route: 048
     Dates: start: 20140904
  34. BENDAMUSTINE [Suspect]
     Active Substance: BENDAMUSTINE
     Dosage: 139 MG, CYCLICAL
     Route: 042
     Dates: end: 20141127
  35. BENDAMUSTINE [Suspect]
     Active Substance: BENDAMUSTINE
     Dosage: 93 MG, CYCLICAL
     Route: 042
     Dates: end: 20150205
  36. AMLIPIN [Concomitant]
     Route: 048
     Dates: start: 2009, end: 20141030
  37. ALGOPYRIN                          /06276704/ [Concomitant]
     Indication: PYREXIA
     Route: 042
     Dates: start: 20141003, end: 20141003
  38. SOLU-MEDROL [Concomitant]
     Active Substance: METHYLPREDNISOLONE SODIUM SUCCINATE
     Dosage: UNK
     Route: 042
     Dates: start: 20140904, end: 20150205

REACTIONS (1)
  - Atrial fibrillation [Recovered/Resolved]

NARRATIVE: CASE EVENT DATE: 20141031
